FAERS Safety Report 6479612-X (Version None)
Quarter: 2009Q4

REPORT INFORMATION
  Report Type: 
  Country: None (occurrence: None)
  Receive Date: 20091207
  Receipt Date: 20091207
  Transmission Date: 20100525
  Serious: Yes (Hospitalization)
  Sender: FDA-Public Use
  Company Number: None

PATIENT
  Sex: Female
  Weight: 61.3 kg

DRUGS (2)
  1. CYCLOPHOSPHAMIDE [Suspect]
     Dosage: 1032 MG
  2. DOXORUBICIN HCL [Suspect]
     Dosage: 103 MG

REACTIONS (5)
  - FATIGUE [None]
  - INFLUENZA SEROLOGY POSITIVE [None]
  - MYALGIA [None]
  - NEUTROPENIA [None]
  - PYREXIA [None]
